FAERS Safety Report 15212945 (Version 1)
Quarter: 2018Q3

REPORT INFORMATION
  Report Type: Spontaneous
  Country: US (occurrence: US)
  Receive Date: 20180730
  Receipt Date: 20180730
  Transmission Date: 20181010
  Serious: Yes (Death, Hospitalization, Other)
  Sender: FDA-Public Use
  Company Number: US-ASTELLAS-2018US033398

PATIENT
  Age: 64 Year
  Sex: Female

DRUGS (2)
  1. ALEMTUZUMAB [Concomitant]
     Active Substance: ALEMTUZUMAB
     Indication: LUNG TRANSPLANT
     Dosage: UNK UNK, UNKNOWN FREQ.
     Route: 065
  2. TACROLIMUS. [Suspect]
     Active Substance: TACROLIMUS
     Indication: LUNG TRANSPLANT
     Dosage: UNK UNK, UNKNOWN FREQ.
     Route: 065

REACTIONS (6)
  - Pulseless electrical activity [Fatal]
  - Epstein-Barr virus infection [Unknown]
  - Product use in unapproved indication [Unknown]
  - Right ventricular failure [Unknown]
  - Vascular compression [Unknown]
  - Post transplant lymphoproliferative disorder [Unknown]
